FAERS Safety Report 14248314 (Version 2)
Quarter: 2017Q4

REPORT INFORMATION
  Report Type: Spontaneous
  Country: US (occurrence: US)
  Receive Date: 20171204
  Receipt Date: 20171218
  Transmission Date: 20180321
  Serious: Yes (Hospitalization, Other)
  Sender: FDA-Public Use
  Company Number: US-TEVA-2017-US-828719

PATIENT
  Age: 64 Year
  Sex: Female

DRUGS (7)
  1. VENTOLIN HFA [Suspect]
     Active Substance: ALBUTEROL SULFATE
     Indication: DYSPNOEA
  2. VENTOLIN HFA [Suspect]
     Active Substance: ALBUTEROL SULFATE
     Indication: CHRONIC OBSTRUCTIVE PULMONARY DISEASE
     Dosage: 8 DOSAGE FORMS DAILY;
     Dates: start: 201201
  3. MEDROL [Concomitant]
     Active Substance: METHYLPREDNISOLONE
  4. PROAIR HFA [Suspect]
     Active Substance: ALBUTEROL SULFATE
     Indication: PRODUCT USED FOR UNKNOWN INDICATION
  5. VENTOLIN HFA [Suspect]
     Active Substance: ALBUTEROL SULFATE
     Indication: BRONCHIAL OBSTRUCTION
     Dosage: 2 PUFFS
  6. VENTOLIN HFA [Suspect]
     Active Substance: ALBUTEROL SULFATE
     Indication: BRONCHIAL OEDEMA
     Dosage: 1 PUFF
  7. ALBUTEROL NEBULIZER [Concomitant]
     Active Substance: ALBUTEROL

REACTIONS (17)
  - Hospitalisation [Unknown]
  - Oxygen saturation decreased [Recovering/Resolving]
  - Exposure to toxic agent [Unknown]
  - Dyspnoea [Recovered/Resolved]
  - Bronchial disorder [Unknown]
  - Memory impairment [Unknown]
  - Drug ineffective [Recovering/Resolving]
  - Overdose [Unknown]
  - Acute respiratory failure [Unknown]
  - Product quality issue [Unknown]
  - Cough [Recovered/Resolved]
  - Unevaluable event [Unknown]
  - Intentional underdose [Recovering/Resolving]
  - Asthenia [Unknown]
  - Oxygen therapy [Unknown]
  - Expired product administered [Unknown]
  - Condition aggravated [Unknown]

NARRATIVE: CASE EVENT DATE: 201211
